FAERS Safety Report 5332733-7 (Version None)
Quarter: 2007Q2

REPORT INFORMATION
  Report Type: 
  Country: None (occurrence: None)
  Receive Date: 20070518
  Receipt Date: 20070502
  Transmission Date: 20071010
  Serious: Yes (Death)
  Sender: FDA-Public Use
  Company Number: DSA_29871_2007

PATIENT

DRUGS (1)
  1. TAVOR /00273201/ (TAVOR) [Suspect]

REACTIONS (1)
  - DEATH [None]
